FAERS Safety Report 18044195 (Version 1)
Quarter: 2020Q3

REPORT INFORMATION
  Report Type: Spontaneous
  Country: US (occurrence: US)
  Receive Date: 20200720
  Receipt Date: 20200720
  Transmission Date: 20201103
  Serious: Yes (Life-Threatening, Other)
  Sender: FDA-Public Use
  Company Number: US-NOVOPROD-740918

PATIENT
  Age: 73 Year
  Sex: Male
  Weight: 95.25 kg

DRUGS (2)
  1. NOVOLOG [Suspect]
     Active Substance: INSULIN ASPART
     Indication: BLOOD GLUCOSE FLUCTUATION
     Dosage: VIA PUMP THEN VIA SLIDING SCALE
     Route: 058
  2. CAVERJECT [Suspect]
     Active Substance: ALPROSTADIL
     Indication: PRODUCT USED FOR UNKNOWN INDICATION
     Dosage: UNK
     Route: 058

REACTIONS (6)
  - Bladder cancer stage IV [Unknown]
  - Weight decreased [Unknown]
  - Hepatic cancer stage IV [Unknown]
  - Renal cancer stage IV [Unknown]
  - Visual impairment [Unknown]
  - Blood glucose decreased [Unknown]

NARRATIVE: CASE EVENT DATE: 2019
